FAERS Safety Report 7959348-6 (Version None)
Quarter: 2011Q4

REPORT INFORMATION
  Report Type: 
  Country: None (occurrence: None)
  Receive Date: 20111206
  Receipt Date: 20111129
  Transmission Date: 20120403
  Serious: Yes (Other)
  Sender: FDA-Public Use
  Company Number: US-PFIZER INC-2011292397

PATIENT

DRUGS (4)
  1. MELPHALAN HYDROCHLORIDE [Suspect]
     Indication: RETINOBLASTOMA
     Dosage: 5 MG, UNK
     Route: 013
  2. HEPARIN [Concomitant]
     Indication: ANTICOAGULANT THERAPY
     Dosage: 75 IU/KG, UNK
     Route: 042
  3. ASPIRIN [Concomitant]
     Dosage: 40 MG FOR 2 WEEKS
     Route: 048
  4. CARBOPLATIN [Suspect]
     Indication: RETINOBLASTOMA
     Dosage: 30 MG, UNK
     Route: 013

REACTIONS (5)
  - CHORIORETINAL ATROPHY [None]
  - OPTIC ATROPHY [None]
  - RETINAL PIGMENT EPITHELIOPATHY [None]
  - RETINAL ARTERY OCCLUSION [None]
  - ARTERIAL STENOSIS [None]
